FAERS Safety Report 7546092-2 (Version None)
Quarter: 2011Q2

REPORT INFORMATION
  Report Type: 
  Country: None (occurrence: None)
  Receive Date: 20110614
  Receipt Date: 20110608
  Transmission Date: 20111010
  Serious: Yes (Death)
  Sender: FDA-Public Use
  Company Number: PHHY2011US31520

PATIENT
  Sex: Female

DRUGS (17)
  1. NITROSTAT [Concomitant]
  2. CITRUCEL [Concomitant]
  3. MORPHINE [Concomitant]
  4. OXYBUTYNIN [Concomitant]
  5. TUSSIN [Concomitant]
  6. PROMETHAZINE [Concomitant]
  7. SANDOSTATIN LAR [Suspect]
     Dosage: 30 MG, QMO
     Dates: end: 20101015
  8. SCOPOLAMINE [Concomitant]
  9. WARFARIN SODIUM [Concomitant]
  10. FUROSEMIDE [Concomitant]
     Indication: HYPERTENSION
     Dosage: 20 MG, UNK
     Route: 048
  11. SANDOSTATIN LAR [Suspect]
     Indication: CARCINOID SYNDROME
     Dosage: 30 MG, QMO
     Dates: start: 20100528
  12. MICARDIS [Concomitant]
     Indication: HYPERTENSION
     Dosage: 40 MG, UNK
     Route: 048
  13. OMEPRAZOLE [Concomitant]
  14. MS CONTIN [Concomitant]
  15. LOMOTIL [Concomitant]
  16. ATACAND [Concomitant]
  17. REGLAN [Concomitant]

REACTIONS (2)
  - FAILURE TO THRIVE [None]
  - PNEUMONIA [None]
